FAERS Safety Report 9578015 (Version 1)
Quarter: 2013Q4

REPORT INFORMATION
  Report Type: Spontaneous
  Country: US (occurrence: US)
  Receive Date: 20131001
  Receipt Date: 20131001
  Transmission Date: 20140711
  Serious: No
  Sender: FDA-Public Use
  Company Number: US-AMGEN-USASP2013011369

PATIENT
  Age: 67 Year
  Sex: Male
  Weight: 68.03 kg

DRUGS (12)
  1. ENBREL [Suspect]
     Indication: RHEUMATOID ARTHRITIS
     Dosage: 50 MG, QWK
     Route: 058
  2. ECOTRIN [Concomitant]
     Dosage: 81 MG EC
  3. NORVASC [Concomitant]
     Dosage: 5 MG, UNK
  4. NEXIUM                             /01479302/ [Concomitant]
     Dosage: 40 MG, UNK
  5. PLAQUENIL                          /00072602/ [Concomitant]
     Dosage: 200 MG, UNK
  6. SIMVASTATIN [Concomitant]
     Dosage: 20 MG, UNK
  7. SULFASALAZIN [Concomitant]
     Dosage: 500 MG DR
  8. TENORMIN [Concomitant]
     Dosage: 100 MG, UNK
  9. CIALIS [Concomitant]
     Dosage: 20 MG, UNK
  10. CALCIUM 500+D [Concomitant]
     Dosage: UNK
  11. MULTIVITAMINS, PLAIN [Concomitant]
     Dosage: UNK
  12. NORFLEX                            /00018303/ [Concomitant]
     Dosage: 100 MG CR

REACTIONS (1)
  - Pyrexia [Recovered/Resolved]
